FAERS Safety Report 5216690-X (Version None)
Quarter: 2006Q4

REPORT INFORMATION
  Report Type: 
  Country: None (occurrence: None)
  Receive Date: 20061130
  Receipt Date: 20060406
  Transmission Date: 20070319
  Serious: Yes (Other)
  Sender: FDA-Public Use
  Company Number: US200604001065

PATIENT
  Age: 31 Year
  Sex: Male
  Weight: 79.8 kg

DRUGS (10)
  1. ZYPREXA ZYDIS [Suspect]
     Indication: HALLUCINATION, AUDITORY
     Dosage: ORAL
     Route: 048
     Dates: start: 20010101, end: 20060201
  2. DEPAKOTE [Concomitant]
  3. ATIVAN [Concomitant]
  4. RISPERDAL /SWE/ (RISPERIDONE) [Concomitant]
  5. PAXIL [Concomitant]
  6. COGENTIN /UNK/ (BENZATROPINE MESILATE) [Concomitant]
  7. HALDOL SOLUTAB [Concomitant]
  8. .. [Concomitant]
  9. PROZAC [Concomitant]
  10. LIPITOR [Concomitant]

REACTIONS (3)
  - SLEEP DISORDER [None]
  - SOMNOLENCE [None]
  - WEIGHT INCREASED [None]
